FAERS Safety Report 26142790 (Version 1)
Quarter: 2025Q4

REPORT INFORMATION
  Report Type: Spontaneous
  Country: US (occurrence: US)
  Receive Date: 20251211
  Receipt Date: 20251211
  Transmission Date: 20260118
  Serious: No
  Sender: ASTELLAS
  Company Number: US-ASTELLAS-2025-AER-067739

PATIENT
  Sex: Female

DRUGS (2)
  1. MYRBETRIQ [Suspect]
     Active Substance: MIRABEGRON
     Indication: Product used for unknown indication
     Route: 050
     Dates: end: 20251202
  2. MYRBETRIQ [Suspect]
     Active Substance: MIRABEGRON
     Dosage: TAKEN TWO MYRBETRIQ 50 MG TABLETS TODAY, TOOK IT LATER (ABOUT 6 HOURS AGO)
     Route: 050
     Dates: start: 20251203

REACTIONS (1)
  - Accidental overdose [Unknown]

NARRATIVE: CASE EVENT DATE: 20251203
